FAERS Safety Report 7660272-7 (Version None)
Quarter: 2011Q3

REPORT INFORMATION
  Report Type: 
  Country: None (occurrence: None)
  Receive Date: 20110805
  Receipt Date: 20110725
  Transmission Date: 20111222
  Serious: Yes (Hospitalization, Other)
  Sender: FDA-Public Use
  Company Number: PHHY2011JP63849

PATIENT
  Age: 48 Year
  Sex: Male

DRUGS (1)
  1. TEGRETOL [Suspect]
     Indication: TEMPORAL LOBE EPILEPSY
     Dosage: UNK UKN, UNK
     Route: 048
     Dates: start: 20090801

REACTIONS (16)
  - WHITE BLOOD CELL COUNT INCREASED [None]
  - DRUG RASH WITH EOSINOPHILIA AND SYSTEMIC SYMPTOMS [None]
  - MALAISE [None]
  - RETINAL HAEMORRHAGE [None]
  - EOSINOPHIL COUNT INCREASED [None]
  - HUMAN HERPES VIRUS 6 SEROLOGY POSITIVE [None]
  - PYREXIA [None]
  - PRURITUS [None]
  - LYMPHOCYTE STIMULATION TEST POSITIVE [None]
  - RASH [None]
  - DERMATITIS EXFOLIATIVE [None]
  - CONJUNCTIVAL HYPERAEMIA [None]
  - EPIDERMAL NECROSIS [None]
  - RASH GENERALISED [None]
  - LYMPHADENOPATHY [None]
  - HEPATIC FUNCTION ABNORMAL [None]
